FAERS Safety Report 6844230-8 (Version None)
Quarter: 2010Q3

REPORT INFORMATION
  Report Type: 
  Country: None (occurrence: None)
  Receive Date: 20100715
  Receipt Date: 20100707
  Transmission Date: 20110219
  Serious: Yes (Hospitalization)
  Sender: FDA-Public Use
  Company Number: B0665488A

PATIENT
  Age: 30 Year
  Sex: Male

DRUGS (6)
  1. WELLBUTRIN [Suspect]
     Indication: DEPRESSION
     Dosage: 300MG PER DAY
     Route: 048
     Dates: end: 20100613
  2. SEROQUEL [Suspect]
     Indication: DEPRESSION
     Dosage: 200MG PER DAY
     Route: 048
     Dates: end: 20100613
  3. SURMONTIL [Suspect]
     Indication: DEPRESSION
     Dosage: 100MG PER DAY
     Route: 048
     Dates: end: 20100613
  4. DOXYCYCLINE [Suspect]
     Indication: URINARY TRACT INFECTION
     Dosage: 200MG PER DAY
     Route: 048
     Dates: start: 20100606, end: 20100613
  5. MAGNESIOCARD [Concomitant]
     Indication: URINARY TRACT INFECTION
     Dosage: 1UNIT PER DAY
  6. HERBAL EXTRACTS [Concomitant]
     Indication: URINARY TRACT INFECTION
     Route: 048
     Dates: end: 20100613

REACTIONS (7)
  - AMNESIA [None]
  - CONFUSIONAL STATE [None]
  - EXCORIATION [None]
  - RENAL FAILURE [None]
  - RHABDOMYOLYSIS [None]
  - SOMNOLENCE [None]
  - TRANSAMINASES INCREASED [None]
